FAERS Safety Report 19286345 (Version 2)
Quarter: 2021Q2

REPORT INFORMATION
  Report Type: Report from Study
  Country: US (occurrence: US)
  Receive Date: 20210521
  Receipt Date: 20210624
  Transmission Date: 20210717
  Serious: Yes (Life-Threatening, Hospitalization, Other)
  Sender: FDA-Public Use
  Company Number: US-PFIZER INC-2021546945

PATIENT
  Age: 78 Year
  Sex: Male
  Weight: 72.6 kg

DRUGS (15)
  1. SILDENAFIL CITRATE. [Suspect]
     Active Substance: SILDENAFIL CITRATE
     Dosage: 60 MG, 3X/DAY
  2. ORENITRAM [Suspect]
     Active Substance: TREPROSTINIL
     Dosage: 11.5 MG, 3X/DAY
     Route: 048
     Dates: start: 202104, end: 202105
  3. REMODULIN [Suspect]
     Active Substance: TREPROSTINIL
     Dosage: 0.060 UG/KG, CONTINUING, IV DRIP
     Route: 041
     Dates: start: 202105
  4. REMODULIN [Suspect]
     Active Substance: TREPROSTINIL
     Dosage: 10 MG/ML, UNK, CONTINUING, IV DRIP
     Route: 041
  5. ORENITRAM [Suspect]
     Active Substance: TREPROSTINIL
     Dosage: 10 MG, 3X/DAY
     Route: 048
  6. ORENITRAM [Suspect]
     Active Substance: TREPROSTINIL
     Dosage: 1 MG, UNK
     Route: 048
  7. SILDENAFIL CITRATE. [Suspect]
     Active Substance: SILDENAFIL CITRATE
     Indication: PULMONARY HYPERTENSION
     Dosage: UNK
     Route: 048
     Dates: start: 20201125
  8. ORENITRAM [Suspect]
     Active Substance: TREPROSTINIL
     Indication: PULMONARY ARTERIAL HYPERTENSION
     Dosage: UNK
     Route: 048
     Dates: start: 20201125
  9. ORENITRAM [Suspect]
     Active Substance: TREPROSTINIL
     Dosage: UNK
     Route: 048
  10. AMBRISENTAN [Suspect]
     Active Substance: AMBRISENTAN
     Indication: PULMONARY ARTERIAL HYPERTENSION
     Dosage: UNK
  11. REMODULIN [Suspect]
     Active Substance: TREPROSTINIL
     Indication: PULMONARY ARTERIAL HYPERTENSION
     Dosage: 2.5 MG/ML, UNK, CONTINUING, IV DRIP
     Route: 041
     Dates: start: 202105
  12. ORENITRAM [Suspect]
     Active Substance: TREPROSTINIL
     Dosage: 12 MG, 3X/DAY
     Route: 048
     Dates: start: 20210504
  13. REMODULIN [Suspect]
     Active Substance: TREPROSTINIL
     Dosage: UNK
     Route: 058
     Dates: start: 202105, end: 202105
  14. REMODULIN [Suspect]
     Active Substance: TREPROSTINIL
     Dosage: 0.060 UG/KG, CONTINUING, IV DRIP
     Route: 041
  15. ELIQUIS [Concomitant]
     Active Substance: APIXABAN
     Dosage: UNK

REACTIONS (21)
  - Loss of consciousness [Unknown]
  - Acute kidney injury [Unknown]
  - Vomiting [Unknown]
  - Off label use [Unknown]
  - Right ventricular failure [Unknown]
  - Back pain [Unknown]
  - Blood pressure decreased [Unknown]
  - Pyrexia [Unknown]
  - Dizziness [Recovered/Resolved]
  - Chromaturia [Recovered/Resolved]
  - Flank pain [Unknown]
  - Condition aggravated [Unknown]
  - Nephrolithiasis [Unknown]
  - Nausea [Unknown]
  - Pulmonary arterial hypertension [Unknown]
  - Photopsia [Recovered/Resolved]
  - Flushing [Unknown]
  - Urinary tract infection [Unknown]
  - Feeling abnormal [Recovered/Resolved]
  - Abdominal pain [Unknown]
  - Oedema peripheral [Recovered/Resolved]

NARRATIVE: CASE EVENT DATE: 202104
